FAERS Safety Report 11102934 (Version 1)
Quarter: 2015Q2

REPORT INFORMATION
  Report Type: Spontaneous
  Country: IT (occurrence: IT)
  Receive Date: 20150511
  Receipt Date: 20150511
  Transmission Date: 20150821
  Serious: Yes (Other)
  Sender: FDA-Public Use
  Company Number: IT-BEH-2014040118

PATIENT
  Sex: Male

DRUGS (1)
  1. IVIG [Suspect]
     Active Substance: HUMAN IMMUNOGLOBULIN G
     Indication: MOTOR NEURONE DISEASE

REACTIONS (2)
  - Drug ineffective for unapproved indication [Unknown]
  - Motor neurone disease [Unknown]
